FAERS Safety Report 20973521 (Version 3)
Quarter: 2024Q4

REPORT INFORMATION
  Report Type: Report from Study
  Country: US (occurrence: US)
  Receive Date: 20220617
  Receipt Date: 20241015
  Transmission Date: 20250115
  Serious: Yes (Other)
  Sender: NOVARTIS
  Company Number: US-NOVARTISTESTPH-NVSC2022US138794

PATIENT
  Age: 38 Year
  Sex: Male

DRUGS (1)
  1. AFINITOR [Suspect]
     Active Substance: EVEROLIMUS
     Indication: Renal hamartoma
     Dosage: 10 MG, QD
     Route: 048
     Dates: start: 20170118, end: 2017

REACTIONS (3)
  - Haematochezia [Recovered/Resolved]
  - Drug level increased [Unknown]
  - Skin discomfort [Recovered/Resolved]

NARRATIVE: CASE EVENT DATE: 20170119
